FAERS Safety Report 8369481-5 (Version None)
Quarter: 2012Q2

REPORT INFORMATION
  Report Type: 
  Country: None (occurrence: None)
  Receive Date: 20120518
  Receipt Date: 20120516
  Transmission Date: 20120825
  Serious: Yes (Other)
  Sender: FDA-Public Use
  Company Number: FI-PFIZER INC-2012118602

PATIENT
  Age: 64 Year
  Sex: Female

DRUGS (1)
  1. SUTENT [Suspect]
     Dosage: UNK
     Dates: start: 20080114

REACTIONS (3)
  - HYPERTENSION [None]
  - MULTI-ORGAN FAILURE [None]
  - HYPOTHYROIDISM [None]
